FAERS Safety Report 14537439 (Version 1)
Quarter: 2018Q1

REPORT INFORMATION
  Report Type: Report from Study
  Country: CO (occurrence: CO)
  Receive Date: 20180215
  Receipt Date: 20180215
  Transmission Date: 20180509
  Serious: Yes (Hospitalization, Other)
  Sender: FDA-Public Use
  Company Number: CO-ACTELION-A-US2018-167263

PATIENT
  Age: 24 Year
  Sex: Female

DRUGS (5)
  1. SILDENAFIL. [Concomitant]
     Active Substance: SILDENAFIL
  2. TRACLEER [Concomitant]
     Active Substance: BOSENTAN
     Indication: PULMONARY ARTERIAL HYPERTENSION
     Route: 048
  3. FUROSEMIDE. [Concomitant]
     Active Substance: FUROSEMIDE
  4. WARFARIN [Concomitant]
     Active Substance: WARFARIN
  5. VENTAVIS [Suspect]
     Active Substance: ILOPROST
     Indication: PULMONARY ARTERIAL HYPERTENSION
     Dosage: 6 DF, QD
     Route: 055
     Dates: start: 20170926

REACTIONS (3)
  - Pulmonary hypertension [Not Recovered/Not Resolved]
  - Cardiomegaly [Unknown]
  - Syncope [Not Recovered/Not Resolved]

NARRATIVE: CASE EVENT DATE: 20180121
